FAERS Safety Report 8794343 (Version 1)
Quarter: 2012Q4

REPORT INFORMATION
  Report Type: 
  Country: US (occurrence: US)
  Receive Date: 20120917
  Receipt Date: 20120917
  Transmission Date: 20130627
  Serious: Yes (Hospitalization)
  Sender: FDA-Public Use
  Company Number: PHEH2012US017820

PATIENT
  Sex: Female

DRUGS (7)
  1. EXELON PATCH [Suspect]
     Route: 062
  2. AMLODIPINE [Concomitant]
  3. ENALAPRIL [Concomitant]
  4. LABETALOL [Concomitant]
  5. TRIAMTERENE [Concomitant]
  6. WARFARIN [Concomitant]
  7. XANAX [Concomitant]

REACTIONS (2)
  - Pneumonia [Unknown]
  - Malaise [Unknown]
